FAERS Safety Report 7432125-0 (Version None)
Quarter: 2011Q2

REPORT INFORMATION
  Report Type: 
  Country: None (occurrence: None)
  Receive Date: 20110422
  Receipt Date: 20110419
  Transmission Date: 20111010
  Serious: Yes (Hospitalization)
  Sender: FDA-Public Use
  Company Number: US-B.I. PHARMACEUTICALS,INC./RIDGEFIELD-2011-BP-05386BP

PATIENT
  Sex: Female

DRUGS (14)
  1. METOPROLOL [Concomitant]
     Indication: ARRHYTHMIA
     Dosage: 25 MG
     Route: 048
  2. ELADIL [Concomitant]
     Indication: RASH
     Route: 048
  3. METFORMIN [Concomitant]
     Indication: DIABETES MELLITUS
     Dosage: 1000 MG
     Route: 048
  4. PRADAXA [Suspect]
     Indication: ATRIAL FIBRILLATION
     Dosage: 300 MG
     Route: 048
     Dates: start: 20110114
  5. PRADAXA [Suspect]
     Indication: ATRIAL FLUTTER
  6. VITAMIN D [Concomitant]
     Indication: PROPHYLAXIS
     Route: 048
  7. CRESTOR [Concomitant]
     Indication: BLOOD CHOLESTEROL INCREASED
     Dosage: 2.5 MG
     Route: 048
  8. TIKOSYN [Concomitant]
  9. PREVACID [Concomitant]
     Indication: GASTROOESOPHAGEAL REFLUX DISEASE
     Dosage: 30 MG
     Route: 048
  10. ZOLEPTIL [Concomitant]
     Indication: MULTIPLE SCLEROSIS
     Route: 048
  11. SYNTHROID [Concomitant]
     Indication: HYPOTHYROIDISM
     Route: 048
  12. ZANTAC [Concomitant]
     Indication: GASTROOESOPHAGEAL REFLUX DISEASE
     Dosage: 150 MG
     Route: 048
  13. ALLEGRA [Concomitant]
     Indication: MULTIPLE ALLERGIES
     Dosage: 240 MG
     Route: 048
  14. SINGULAIR [Concomitant]
     Indication: MULTIPLE ALLERGIES
     Route: 048

REACTIONS (7)
  - PURPURA [None]
  - RASH GENERALISED [None]
  - RASH [None]
  - HYPERSENSITIVITY [None]
  - RASH PRURITIC [None]
  - URTICARIA [None]
  - PETECHIAE [None]
